FAERS Safety Report 25430287 (Version 2)
Quarter: 2025Q2

REPORT INFORMATION
  Report Type: Spontaneous
  Country: ES (occurrence: ES)
  Receive Date: 20250612
  Receipt Date: 20250617
  Transmission Date: 20250716
  Serious: Yes (Other)
  Sender: AMGEN
  Company Number: ES-AMGEN-ESPSP2025111953

PATIENT

DRUGS (2)
  1. BEVACIZUMAB [Suspect]
     Active Substance: BEVACIZUMAB
     Indication: Colorectal cancer metastatic
     Dosage: 5 MILLIGRAM/KILOGRAM, Q2WK
     Route: 065
  2. TIPIRACIL HYDROCHLORIDE\TRIFLURIDINE [Concomitant]
     Active Substance: TIPIRACIL HYDROCHLORIDE\TRIFLURIDINE
     Indication: Colorectal cancer metastatic
     Dosage: 35 MILLIGRAM/SQ. METER, BID, (ON DAYS 1-5 AND 8-12 EVERY 28 DAYS)

REACTIONS (4)
  - Colorectal cancer metastatic [Unknown]
  - Neutropenia [Unknown]
  - Adverse event [Unknown]
  - Anaemia [Unknown]
